FAERS Safety Report 6396842-6 (Version None)
Quarter: 2009Q4

REPORT INFORMATION
  Report Type: 
  Country: None (occurrence: None)
  Receive Date: 20091012
  Receipt Date: 20090724
  Transmission Date: 20100525
  Serious: No
  Sender: FDA-Public Use
  Company Number: US-ASTRAZENECA-2009UW14047

PATIENT
  Sex: Male
  Weight: 136.1 kg

DRUGS (11)
  1. SYMBICORT [Suspect]
     Indication: ASTHMA
     Dosage: 160/4.5 UG, 2 PUFFS
     Route: 055
     Dates: start: 20090325
  2. SYMBICORT [Suspect]
     Dosage: 160/4.5 UG, 2 PUFFS
     Route: 055
     Dates: start: 20090418
  3. SYMBICORT [Suspect]
     Dosage: 160/4.5 UG, 2 PUFFS
     Route: 055
  4. VERAMYST [Concomitant]
  5. PULMICORT FLEXHALER [Concomitant]
  6. PROVENTIL-HFA [Concomitant]
  7. FUROSEMIDE [Concomitant]
  8. BUMETANIDE [Concomitant]
  9. DOXYCYCLINE [Concomitant]
  10. POTASSIUM CHLORIDE [Concomitant]
  11. DIAZEPAM [Concomitant]

REACTIONS (4)
  - BRADYPHRENIA [None]
  - DRUG INEFFECTIVE [None]
  - DYSPNOEA [None]
  - ILL-DEFINED DISORDER [None]
